FAERS Safety Report 5827206-9 (Version None)
Quarter: 2008Q3

REPORT INFORMATION
  Report Type: 
  Country: None (occurrence: None)
  Receive Date: 20080725
  Receipt Date: 20080715
  Transmission Date: 20090109
  Serious: Yes (Other)
  Sender: FDA-Public Use
  Company Number: US024104

PATIENT
  Sex: Male

DRUGS (2)
  1. PROVIGIL [Suspect]
     Dosage: 300 MG ORAL
     Route: 048
  2. PENICILLIN /00000903/ [Suspect]

REACTIONS (5)
  - ARTHRALGIA [None]
  - DRUG ERUPTION [None]
  - LEUKOCYTOSIS [None]
  - LYMPHADENOPATHY [None]
  - MOUTH ULCERATION [None]
